FAERS Safety Report 18685239 (Version 3)
Quarter: 2021Q1

REPORT INFORMATION
  Report Type: Spontaneous
  Country: IN (occurrence: IN)
  Receive Date: 20201230
  Receipt Date: 20210111
  Transmission Date: 20210419
  Serious: Yes (Other)
  Sender: FDA-Public Use
  Company Number: IN-PFIZER INC-2020507644

PATIENT
  Age: 8 Year
  Sex: Male

DRUGS (4)
  1. CLINDAMYCIN. [Concomitant]
     Active Substance: CLINDAMYCIN
     Indication: DIPHTHERIA
     Dosage: UNK
     Route: 048
  2. BENZYLPENICILLIN [Suspect]
     Active Substance: PENICILLIN G
     Indication: DIPHTHERIA
     Dosage: UNK (PARENTERAL CRYSTALLINE PENICILLIN)
     Route: 051
  3. AMOXICILLIN TRIHYDRATE/CLAVULANIC ACID [Suspect]
     Active Substance: AMOXICILLIN\CLAVULANIC ACID
     Indication: TONSILLITIS BACTERIAL
     Dosage: UNK
  4. DIPHTHERIA ANTITOXIN [DIPHTHERIA ANTITOXIN IMMUNE SERA] [Concomitant]
     Indication: DIPHTHERIA
     Dosage: 80000 IU

REACTIONS (2)
  - Rash erythematous [Recovered/Resolved]
  - Rash maculo-papular [Recovered/Resolved]
